FAERS Safety Report 26130648 (Version 1)
Quarter: 2025Q4

REPORT INFORMATION
  Report Type: Spontaneous
  Country: US (occurrence: None)
  Receive Date: 20251206
  Receipt Date: 20251206
  Transmission Date: 20260118
  Serious: Yes (Hospitalization)
  Sender: FDA-CTU
  Company Number: None

PATIENT
  Sex: Female
  Weight: 68 kg

DRUGS (2)
  1. CARBOPLATIN [Suspect]
     Active Substance: CARBOPLATIN
     Dates: end: 20251113
  2. TAXOL [Suspect]
     Active Substance: PACLITAXEL
     Dates: end: 20251113

REACTIONS (2)
  - Oesophagitis [None]
  - Oesophageal motility disorder [None]

NARRATIVE: CASE EVENT DATE: 20251119
